FAERS Safety Report 24010036 (Version 3)
Quarter: 2024Q3

REPORT INFORMATION
  Report Type: Report from Study
  Country: FR (occurrence: FR)
  Receive Date: 20240625
  Receipt Date: 20240703
  Transmission Date: 20241017
  Serious: Yes (Death, Other)
  Sender: PFIZER
  Company Number: FR-PFIZER INC-PV202200109204

PATIENT
  Age: 55 Year
  Sex: Female
  Weight: 74 kg

DRUGS (33)
  1. IRINOTECAN HYDROCHLORIDE [Suspect]
     Active Substance: IRINOTECAN HYDROCHLORIDE
     Dosage: UNK
  2. SACITUZUMAB GOVITECAN [Suspect]
     Active Substance: SACITUZUMAB GOVITECAN
     Indication: Triple negative breast cancer
     Dosage: 10 MG/KG, C1D1, D8 NOT SPECIFIED
     Route: 042
     Dates: start: 20220404
  3. SACITUZUMAB GOVITECAN [Suspect]
     Active Substance: SACITUZUMAB GOVITECAN
     Dosage: 5.13 MG/KG, C2D1, D8
     Route: 042
     Dates: start: 20220426, end: 20220503
  4. SACITUZUMAB GOVITECAN [Suspect]
     Active Substance: SACITUZUMAB GOVITECAN
     Dosage: 5.13 MG/KG, C3D1, D8
     Route: 042
     Dates: start: 20220517, end: 20220524
  5. SACITUZUMAB GOVITECAN [Suspect]
     Active Substance: SACITUZUMAB GOVITECAN
     Dosage: 5.13 MG/KG, C4D1, D8
     Route: 042
     Dates: start: 20220608, end: 20220614
  6. SACITUZUMAB GOVITECAN [Suspect]
     Active Substance: SACITUZUMAB GOVITECAN
     Dosage: 5.13 MG/KG, C5D1, D8
     Route: 042
     Dates: start: 20220628, end: 20220705
  7. SACITUZUMAB GOVITECAN [Suspect]
     Active Substance: SACITUZUMAB GOVITECAN
     Dosage: 5.13 MG/KG, C6D1, D8
     Route: 042
     Dates: start: 20220726, end: 20220803
  8. SACITUZUMAB GOVITECAN [Suspect]
     Active Substance: SACITUZUMAB GOVITECAN
     Dosage: 5.13 MG/KG, C7D1, D8
     Route: 042
     Dates: start: 20220817, end: 20220823
  9. SACITUZUMAB GOVITECAN [Suspect]
     Active Substance: SACITUZUMAB GOVITECAN
     Dosage: 5.13 MG/KG, C8D1, D8
     Route: 042
     Dates: start: 20220906, end: 20220913
  10. SACITUZUMAB GOVITECAN [Suspect]
     Active Substance: SACITUZUMAB GOVITECAN
     Dosage: 5.13 MG/KG, C9D1, D8
     Route: 042
     Dates: start: 20221011, end: 20221018
  11. SACITUZUMAB GOVITECAN [Suspect]
     Active Substance: SACITUZUMAB GOVITECAN
     Dosage: 5.13 MG/KG, C10D1, D8
     Route: 042
     Dates: start: 20221102, end: 20221108
  12. SACITUZUMAB GOVITECAN [Suspect]
     Active Substance: SACITUZUMAB GOVITECAN
     Dosage: DOSE REDUCED BY 50%
     Route: 042
  13. SACITUZUMAB GOVITECAN [Suspect]
     Active Substance: SACITUZUMAB GOVITECAN
     Dosage: 5.13 MG/KG, C11D1 AND C11 D8
     Route: 042
     Dates: start: 20221122, end: 20221129
  14. SACITUZUMAB GOVITECAN [Suspect]
     Active Substance: SACITUZUMAB GOVITECAN
     Dosage: 5.13 MG/KG, C12
     Route: 042
  15. SACITUZUMAB GOVITECAN [Suspect]
     Active Substance: SACITUZUMAB GOVITECAN
     Dosage: 5 MG/KG, C13D1 AND C13D8
     Route: 042
     Dates: start: 20230103, end: 20230110
  16. SACITUZUMAB GOVITECAN [Suspect]
     Active Substance: SACITUZUMAB GOVITECAN
     Dosage: 5 MG/KG
     Route: 042
     Dates: start: 20230125, end: 20230131
  17. SACITUZUMAB GOVITECAN [Suspect]
     Active Substance: SACITUZUMAB GOVITECAN
     Dosage: 5 MG/KG, C15D1D8
     Route: 042
     Dates: start: 20230215, end: 20230222
  18. SACITUZUMAB GOVITECAN [Suspect]
     Active Substance: SACITUZUMAB GOVITECAN
     Dosage: 5 MG/KG, C16D1D8
     Route: 042
     Dates: start: 20230308, end: 20230315
  19. SACITUZUMAB GOVITECAN [Suspect]
     Active Substance: SACITUZUMAB GOVITECAN
     Dosage: 5 MG/KG, C18D1 AND C18D8
     Route: 042
     Dates: start: 20230418, end: 20230425
  20. SACITUZUMAB GOVITECAN [Suspect]
     Active Substance: SACITUZUMAB GOVITECAN
     Dosage: 5 MG/KG, C19D1 AND C19D8
     Route: 042
     Dates: start: 20230511, end: 20230517
  21. SACITUZUMAB GOVITECAN [Suspect]
     Active Substance: SACITUZUMAB GOVITECAN
     Dosage: 5 MG/KG, C20D1 AND C20D8
     Route: 042
     Dates: start: 20230530, end: 20230607
  22. SACITUZUMAB GOVITECAN [Suspect]
     Active Substance: SACITUZUMAB GOVITECAN
     Dosage: 5 MG/KG, C21D1 AND C21D8
     Route: 042
     Dates: start: 20230621, end: 20230628
  23. SACITUZUMAB GOVITECAN [Suspect]
     Active Substance: SACITUZUMAB GOVITECAN
     Dosage: 5 MG/KG, C22D1 AND C22D8
     Route: 042
     Dates: start: 20230712, end: 20230719
  24. SACITUZUMAB GOVITECAN [Suspect]
     Active Substance: SACITUZUMAB GOVITECAN
     Dosage: 5 MG/KG, C23D1 AND C23D8
     Route: 042
     Dates: start: 20230801, end: 20230809
  25. SACITUZUMAB GOVITECAN [Suspect]
     Active Substance: SACITUZUMAB GOVITECAN
     Dosage: 5 MG/KG, C24D1 AND C24D8
     Route: 042
     Dates: start: 20230823, end: 20230830
  26. SACITUZUMAB GOVITECAN [Suspect]
     Active Substance: SACITUZUMAB GOVITECAN
     Dosage: 5 MG/KG, C25D1 AND C25D8
     Route: 042
     Dates: start: 20230913, end: 20230919
  27. SACITUZUMAB GOVITECAN [Suspect]
     Active Substance: SACITUZUMAB GOVITECAN
     Dosage: 5 MG/KG, C26D1 AND C26D8
     Route: 042
     Dates: start: 20231005, end: 20231012
  28. SACITUZUMAB GOVITECAN [Suspect]
     Active Substance: SACITUZUMAB GOVITECAN
     Dosage: 5 MG/KG, C27D1
     Route: 042
     Dates: start: 20231030
  29. SACITUZUMAB GOVITECAN [Suspect]
     Active Substance: SACITUZUMAB GOVITECAN
     Dosage: 5 MG/KG, C28D1D8
     Route: 042
     Dates: start: 20231127, end: 20231204
  30. SACITUZUMAB GOVITECAN [Suspect]
     Active Substance: SACITUZUMAB GOVITECAN
     Dosage: 5 MG/KG, C29D1D8
     Route: 042
     Dates: start: 20240105, end: 20240112
  31. SACITUZUMAB GOVITECAN [Suspect]
     Active Substance: SACITUZUMAB GOVITECAN
     Dosage: 5 MG/KG, C32D1D8
     Route: 042
     Dates: start: 20240313, end: 20240321
  32. SACITUZUMAB GOVITECAN [Suspect]
     Active Substance: SACITUZUMAB GOVITECAN
     Dosage: 5 MG/KG, C33D1D8
     Route: 042
     Dates: start: 20240405, end: 20240411
  33. SACITUZUMAB GOVITECAN [Suspect]
     Active Substance: SACITUZUMAB GOVITECAN
     Dosage: C18D1 AND C18D8, MTNBC
     Route: 042
     Dates: start: 20240606, end: 20240612

REACTIONS (12)
  - Death [Fatal]
  - Thrombocytopenia [Unknown]
  - Neutropenia [Unknown]
  - Asthenia [Unknown]
  - Gastroenteritis [Unknown]
  - Vomiting [Unknown]
  - Diarrhoea [Unknown]
  - Inappropriate schedule of product administration [Unknown]
  - Inappropriate schedule of product administration [Unknown]
  - Inappropriate schedule of product administration [Unknown]
  - Inappropriate schedule of product administration [Unknown]
  - Inappropriate schedule of product administration [Recovered/Resolved]

NARRATIVE: CASE EVENT DATE: 20220101
